FAERS Safety Report 9655509 (Version 1)
Quarter: 2013Q4

REPORT INFORMATION
  Report Type: Spontaneous
  Country: US (occurrence: US)
  Receive Date: 20131029
  Receipt Date: 20131029
  Transmission Date: 20140711
  Serious: Yes (Other)
  Sender: FDA-Public Use
  Company Number: US-RB-059989-13

PATIENT
  Age: 0 None
  Sex: Male

DRUGS (3)
  1. SUBOXONE FILM [Suspect]
     Indication: DRUG DEPENDENCE
     Dosage: SUBOXONE FILM. MOTHER WAS TAKING UNKNOWN DAILY DOSES.
     Route: 064
     Dates: start: 201301, end: 2013
  2. SUBOXONE FILM [Suspect]
     Dosage: SUBOXONE FILM. 1-2 MG DAILY DOSE.
     Route: 064
     Dates: start: 2013, end: 20130825
  3. PRENATAL VITAMINS [Concomitant]
     Indication: PREGNANCY
     Dosage: MOTHER WAS TAKING ONE VITAMIN OF UNKNOWN DOSE A DAY.
     Route: 064
     Dates: start: 201301, end: 20130825

REACTIONS (3)
  - Foetal exposure during pregnancy [Recovered/Resolved]
  - Premature baby [Recovered/Resolved]
  - Low birth weight baby [Recovered/Resolved]
